FAERS Safety Report 5602404-8 (Version None)
Quarter: 2008Q1

REPORT INFORMATION
  Report Type: 
  Country: None (occurrence: None)
  Receive Date: 20080125
  Receipt Date: 20080116
  Transmission Date: 20080703
  Serious: Yes (Hospitalization)
  Sender: FDA-Public Use
  Company Number: FR-ASTRAZENECA-2008CG00098

PATIENT
  Age: 759 Month
  Sex: Male
  Weight: 44 kg

DRUGS (8)
  1. NEXIUM [Suspect]
     Route: 048
  2. VFEND [Suspect]
     Route: 048
     Dates: start: 20071127, end: 20071204
  3. DEROXAT [Suspect]
     Route: 048
     Dates: start: 20071129, end: 20071204
  4. KARDEGIC [Concomitant]
  5. LEVOTHYROX [Concomitant]
  6. PERFALGAN [Concomitant]
  7. STILNOX [Concomitant]
  8. VALACYCLOVIR [Concomitant]

REACTIONS (4)
  - CHOLESTASIS [None]
  - DRUG INTERACTION [None]
  - GAMMA-GLUTAMYLTRANSFERASE INCREASED [None]
  - TOXIC SKIN ERUPTION [None]
